FAERS Safety Report 9192101 (Version 1)
Quarter: 2013Q1

REPORT INFORMATION
  Report Type: Spontaneous
  Country: US (occurrence: None)
  Receive Date: 20130326
  Receipt Date: 20130326
  Transmission Date: 20140127
  Serious: Yes (Other)
  Sender: FDA-Public Use
  Company Number: None

PATIENT
  Age: 46 Year
  Sex: Female
  Weight: 69.4 kg

DRUGS (1)
  1. LABETALOL [Suspect]
     Indication: PHAEOCHROMOCYTOMA
     Route: 002
     Dates: start: 20100402, end: 20130325

REACTIONS (2)
  - Rash generalised [None]
  - Reaction to azo-dyes [None]
